FAERS Safety Report 17827491 (Version 1)
Quarter: 2020Q2

REPORT INFORMATION
  Report Type: Spontaneous
  Country: GB (occurrence: GB)
  Receive Date: 20200527
  Receipt Date: 20200527
  Transmission Date: 20200714
  Serious: Yes (Other)
  Sender: FDA-Public Use
  Company Number: GB-TEVA-2020-GB-1240021

PATIENT
  Age: 28 Year
  Sex: Female
  Weight: 58.06 kg

DRUGS (3)
  1. OCTASA [Concomitant]
     Active Substance: MESALAMINE
  2. PREDNISOLONE. [Suspect]
     Active Substance: PREDNISOLONE
     Indication: COLITIS ULCERATIVE
     Dosage: VARYING FROM 50MG TO 5MG.
     Route: 048
     Dates: start: 20171111, end: 20190101
  3. VENLAFAXINE [Concomitant]
     Active Substance: VENLAFAXINE HYDROCHLORIDE

REACTIONS (3)
  - Steroid withdrawal syndrome [Unknown]
  - Toothache [Not Recovered/Not Resolved]
  - Hyperaesthesia teeth [Not Recovered/Not Resolved]

NARRATIVE: CASE EVENT DATE: 20190101
